FAERS Safety Report 10146793 (Version 1)
Quarter: 2014Q2

REPORT INFORMATION
  Report Type: Spontaneous
  Country: US (occurrence: None)
  Receive Date: 20140430
  Receipt Date: 20140430
  Transmission Date: 20141212
  Serious: Yes (Hospitalization)
  Sender: FDA-Public Use
  Company Number: None

PATIENT
  Age: 63 Year
  Sex: Male

DRUGS (16)
  1. INSULIN [Suspect]
     Indication: HYPERGLYCAEMIA
     Route: 058
     Dates: start: 20140219, end: 20140226
  2. ACETAMINOPHEN [Concomitant]
  3. ACETYLCYSTEINE [Concomitant]
  4. ATORVASTATIN [Concomitant]
  5. INSULIN ASPART [Concomitant]
  6. LACTOBACILLUS GRANULES [Concomitant]
  7. LANSOPRAZOLE [Concomitant]
  8. METOPROLOL TARTRATE [Concomitant]
  9. MYCOPHENOLATE [Concomitant]
  10. NIFEDIPINE [Concomitant]
  11. OXYCODONE-ACETAMINOPHEN [Concomitant]
  12. QUETIAPINE [Concomitant]
  13. RANITIDINE [Concomitant]
  14. TACROLIMUS [Concomitant]
  15. VANCOMYCIN [Concomitant]
  16. CLINDAMYCIN [Concomitant]

REACTIONS (1)
  - Hypoglycaemia [None]
